FAERS Safety Report 13756144 (Version 1)
Quarter: 2017Q3

REPORT INFORMATION
  Report Type: Spontaneous
  Country: CN (occurrence: CN)
  Receive Date: 20170714
  Receipt Date: 20170714
  Transmission Date: 20171127
  Serious: Yes (Other)
  Sender: FDA-Public Use
  Company Number: CN-MERCK KGAA-2023391

PATIENT
  Age: 26 Year

DRUGS (3)
  1. NOVOTHYROX [Suspect]
     Active Substance: LEVOTHYROXINE SODIUM
     Indication: HYPOTHYROIDISM
     Route: 048
  2. LEUCOGEN [Concomitant]
     Active Substance: LEUCOGEN
     Route: 048
  3. THYROZOL [Suspect]
     Active Substance: METHIMAZOLE
     Route: 048

REACTIONS (2)
  - Exophthalmos [Recovering/Resolving]
  - Hypothyroidism [Unknown]
